FAERS Safety Report 4566214-5 (Version None)
Quarter: 2005Q1

REPORT INFORMATION
  Report Type: 
  Country: None (occurrence: None)
  Receive Date: 20050201
  Receipt Date: 20050121
  Transmission Date: 20050727
  Serious: Yes (Other)
  Sender: FDA-Public Use
  Company Number: PHEH2005US01176

PATIENT
  Age: 22 Year
  Sex: Female

DRUGS (1)
  1. LAMISIL [Suspect]
     Indication: NAIL TINEA
     Dosage: 250 MG, QD
     Route: 048

REACTIONS (5)
  - ARTHRALGIA [None]
  - DIZZINESS [None]
  - IMMOBILE [None]
  - MYALGIA [None]
  - TREMOR [None]
